FAERS Safety Report 12980584 (Version 1)
Quarter: 2016Q4

REPORT INFORMATION
  Report Type: Spontaneous
  Country: FR (occurrence: FR)
  Receive Date: 20161128
  Receipt Date: 20161128
  Transmission Date: 20170207
  Serious: Yes (Hospitalization)
  Sender: FDA-Public Use
  Company Number: FR-SA-2016SA215108

PATIENT
  Age: 33 Year
  Sex: Male

DRUGS (3)
  1. CORTANCYL [Suspect]
     Active Substance: PREDNISONE
     Indication: UVEITIS
     Route: 048
     Dates: start: 1999
  2. NEORAL [Suspect]
     Active Substance: CYCLOSPORINE
     Indication: UVEITIS
     Route: 048
     Dates: start: 200902
  3. AUBAGIO [Suspect]
     Active Substance: TERIFLUNOMIDE
     Indication: MULTIPLE SCLEROSIS
     Route: 048
     Dates: start: 20160706

REACTIONS (1)
  - Pulmonary embolism [Recovered/Resolved]

NARRATIVE: CASE EVENT DATE: 20160926
